FAERS Safety Report 16171610 (Version 1)
Quarter: 2019Q2

REPORT INFORMATION
  Report Type: Spontaneous
  Country: US (occurrence: US)
  Receive Date: 20190408
  Receipt Date: 20190408
  Transmission Date: 20190711
  Serious: No
  Sender: FDA-Public Use
  Company Number: US-ACTELION-A-US2019-186061

PATIENT
  Sex: Male

DRUGS (1)
  1. OPSUMIT [Suspect]
     Active Substance: MACITENTAN
     Indication: PRODUCT USED FOR UNKNOWN INDICATION
     Route: 048

REACTIONS (6)
  - Pharyngeal paraesthesia [Unknown]
  - Rhinorrhoea [Unknown]
  - Dyspnoea [Unknown]
  - Nasal congestion [Unknown]
  - Taste disorder [Unknown]
  - Dizziness [Unknown]
